FAERS Safety Report 5105144-7 (Version None)
Quarter: 2006Q3

REPORT INFORMATION
  Report Type: 
  Country: None (occurrence: None)
  Receive Date: 20060911
  Receipt Date: 20060829
  Transmission Date: 20061208
  Serious: Yes (Other)
  Sender: FDA-Public Use
  Company Number: 2006105770

PATIENT
  Age: 63 Year
  Sex: Female

DRUGS (5)
  1. CHANTIX [Suspect]
     Indication: SMOKING CESSATION THERAPY
     Dosage: 0.5 MG (0.5 MG, 1 IN 1 D), ORAL
     Route: 048
     Dates: start: 20060828
  2. ZESTORETIC (HYDROCHLOROTHIZIDE, LISINOPRIL) [Concomitant]
  3. LIPITPR (ATORVASTATIN) [Concomitant]
  4. CEPHALEXIN [Concomitant]
  5. INSULIN (INSULIN) [Concomitant]

REACTIONS (1)
  - BLOOD GLUCOSE DECREASED [None]
